FAERS Safety Report 20110688 (Version 1)
Quarter: 2021Q4

REPORT INFORMATION
  Report Type: Spontaneous
  Country: US (occurrence: US)
  Receive Date: 20211124
  Receipt Date: 20211124
  Transmission Date: 20220303
  Serious: Yes (Hospitalization, Other)
  Sender: FDA-Public Use
  Company Number: US-TEVA-2021-US-1978829

PATIENT
  Age: 60 Year
  Sex: Female

DRUGS (48)
  1. METFORMIN [Suspect]
     Active Substance: METFORMIN HYDROCHLORIDE
     Indication: Product used for unknown indication
     Dosage: 1000 MILLIGRAM DAILY;
     Route: 065
  2. METFORMIN [Suspect]
     Active Substance: METFORMIN HYDROCHLORIDE
     Route: 065
  3. METFORMIN [Suspect]
     Active Substance: METFORMIN HYDROCHLORIDE
     Dosage: 500 MILLIGRAM DAILY;
     Route: 065
  4. SOTALOL [Suspect]
     Active Substance: SOTALOL
     Indication: Product used for unknown indication
     Route: 065
  5. WARFARIN [Suspect]
     Active Substance: WARFARIN
     Indication: Product used for unknown indication
     Route: 065
  6. WARFARIN [Suspect]
     Active Substance: WARFARIN
     Route: 065
  7. WARFARIN [Suspect]
     Active Substance: WARFARIN
     Route: 065
  8. DOXEPIN [Suspect]
     Active Substance: DOXEPIN
     Indication: Depression
     Route: 065
  9. DOXEPIN [Suspect]
     Active Substance: DOXEPIN
     Indication: Memory impairment
  10. OZEMPIC [Suspect]
     Active Substance: SEMAGLUTIDE
     Indication: Product used for unknown indication
  11. JAKAFI [Suspect]
     Active Substance: RUXOLITINIB
     Indication: Polycythaemia vera
     Dosage: 30 MILLIGRAM DAILY;
     Route: 048
     Dates: start: 20160501
  12. JAKAFI [Suspect]
     Active Substance: RUXOLITINIB
     Dosage: 30 MILLIGRAM DAILY;
     Route: 048
  13. JAKAFI [Suspect]
     Active Substance: RUXOLITINIB
     Dosage: 30 MILLIGRAM DAILY;
     Route: 048
  14. JAKAFI [Suspect]
     Active Substance: RUXOLITINIB
     Route: 048
  15. JAKAFI [Suspect]
     Active Substance: RUXOLITINIB
     Dosage: 30 MILLIGRAM DAILY;
     Route: 048
  16. JAKAFI [Suspect]
     Active Substance: RUXOLITINIB
     Dosage: 30 MILLIGRAM DAILY;
     Route: 048
  17. JAKAFI [Suspect]
     Active Substance: RUXOLITINIB
     Dosage: 30 MILLIGRAM DAILY;
     Route: 048
     Dates: start: 20200608
  18. JAKAFI [Suspect]
     Active Substance: RUXOLITINIB
     Dosage: 30 MILLIGRAM DAILY;
     Route: 048
  19. JAKAFI [Suspect]
     Active Substance: RUXOLITINIB
     Dosage: 30 MILLIGRAM DAILY;
     Route: 048
     Dates: start: 20170110
  20. JAKAFI [Suspect]
     Active Substance: RUXOLITINIB
     Dosage: 20 MILLIGRAM DAILY;
     Route: 048
     Dates: start: 2015
  21. LASIX [Suspect]
     Active Substance: FUROSEMIDE
     Indication: Fluid retention
     Route: 065
  22. LASIX [Suspect]
     Active Substance: FUROSEMIDE
     Route: 065
  23. SYNTHROID [Concomitant]
     Active Substance: LEVOTHYROXINE SODIUM
     Route: 065
  24. CALTRATE WITH VITAMIN D [Concomitant]
     Active Substance: CALCIUM CARBONATE\CHOLECALCIFEROL
  25. VITAMIN D2 [Concomitant]
     Active Substance: ERGOCALCIFEROL
     Route: 065
  26. GLIPIZIDE [Concomitant]
     Active Substance: GLIPIZIDE
     Route: 065
  27. LOTREL [Concomitant]
     Active Substance: AMLODIPINE BESYLATE\BENAZEPRIL HYDROCHLORIDE
     Route: 065
  28. PRILOSEC [Concomitant]
     Active Substance: OMEPRAZOLE MAGNESIUM
     Route: 065
  29. ALLOPURINOL [Concomitant]
     Active Substance: ALLOPURINOL
     Route: 065
  30. LOPRESSOR [Concomitant]
     Active Substance: METOPROLOL TARTRATE
     Route: 065
  31. FENOFIBRATE [Concomitant]
     Active Substance: FENOFIBRATE
     Route: 065
  32. ASPIRIN [Concomitant]
     Active Substance: ASPIRIN
     Route: 065
  33. OMEGA 3 [Concomitant]
     Active Substance: CAPSAICIN
     Route: 065
  34. METOPROLOL [Concomitant]
     Active Substance: METOPROLOL
     Route: 065
  35. NEURONTIN [Concomitant]
     Active Substance: GABAPENTIN
     Route: 065
  36. JANUVIA [Concomitant]
     Active Substance: SITAGLIPTIN PHOSPHATE
     Route: 065
  37. CIPROFLOXACIN [Concomitant]
     Active Substance: CIPROFLOXACIN
     Route: 065
  38. FLAGYL [Concomitant]
     Active Substance: METRONIDAZOLE\METRONIDAZOLE HYDROCHLORIDE
     Route: 065
  39. ACYCLOVIR [Concomitant]
     Active Substance: ACYCLOVIR
     Route: 065
  40. MELATONIN [Concomitant]
     Active Substance: MELATONIN
     Route: 065
  41. AMLODIPINE [Concomitant]
     Active Substance: AMLODIPINE BESYLATE
     Route: 065
  42. BENAZEPRIL [Concomitant]
     Active Substance: BENAZEPRIL HYDROCHLORIDE
     Route: 065
  43. CALTRATE [Concomitant]
     Active Substance: CALCIUM CARBONATE
     Route: 065
  44. GLIMEPIRIDE [Concomitant]
     Active Substance: GLIMEPIRIDE
     Route: 065
  45. ESOMEPRAZOLE MAGNESIUM [Concomitant]
     Active Substance: ESOMEPRAZOLE MAGNESIUM
     Route: 065
  46. ALOGLIPTIN [Concomitant]
     Active Substance: ALOGLIPTIN
     Route: 065
  47. BYDUREON [Concomitant]
     Active Substance: EXENATIDE
     Route: 065
  48. BASAGLAR [Concomitant]
     Active Substance: INSULIN GLARGINE
     Route: 065

REACTIONS (48)
  - Dyspnoea [Unknown]
  - Chest discomfort [Unknown]
  - Retinopathy [Unknown]
  - Platelet count decreased [Not Recovered/Not Resolved]
  - Splenomegaly [Recovered/Resolved]
  - Fluid retention [Unknown]
  - Blood uric acid increased [Unknown]
  - Blood calcium decreased [Recovered/Resolved]
  - Weight decreased [Unknown]
  - Pruritus [Not Recovered/Not Resolved]
  - Depression [Unknown]
  - Memory impairment [Unknown]
  - Anxiety [Unknown]
  - Blood triglycerides increased [Unknown]
  - Nasopharyngitis [Unknown]
  - Red blood cell count decreased [Unknown]
  - Nephrolithiasis [Unknown]
  - Chronic kidney disease [Recovering/Resolving]
  - Diverticulitis [Unknown]
  - Mental impairment [Unknown]
  - Atrial fibrillation [Unknown]
  - Bone marrow failure [Not Recovered/Not Resolved]
  - Immune system disorder [Unknown]
  - Blood glucose abnormal [Unknown]
  - Influenza [Recovered/Resolved]
  - Herpes zoster [Not Recovered/Not Resolved]
  - Myopia [Unknown]
  - Full blood count abnormal [Unknown]
  - Feeling abnormal [Unknown]
  - Hypermetropia [Unknown]
  - Hepatomegaly [Not Recovered/Not Resolved]
  - Gastrointestinal disorder [Not Recovered/Not Resolved]
  - Blood iron decreased [Recovered/Resolved]
  - Epistaxis [Unknown]
  - Sneezing [Unknown]
  - Fatigue [Recovering/Resolving]
  - Tooth infection [Unknown]
  - Blood iron increased [Unknown]
  - Sinusitis [Unknown]
  - Hepatic pain [Unknown]
  - Abdominal discomfort [Unknown]
  - Proteinuria [Unknown]
  - Bone marrow disorder [Not Recovered/Not Resolved]
  - Intervertebral disc protrusion [Unknown]
  - Meniscus injury [Unknown]
  - Synovial cyst [Unknown]
  - Road traffic accident [Unknown]
  - Product availability issue [Unknown]

NARRATIVE: CASE EVENT DATE: 20160101
